FAERS Safety Report 9548150 (Version 1)
Quarter: 2013Q3

REPORT INFORMATION
  Report Type: Spontaneous
  Country: NL (occurrence: NL)
  Receive Date: 20130924
  Receipt Date: 20130924
  Transmission Date: 20140515
  Serious: Yes (Hospitalization)
  Sender: FDA-Public Use
  Company Number: NL-AMGEN-NLDSP2013066619

PATIENT
  Age: 50 Year
  Sex: Female

DRUGS (9)
  1. NEULASTA [Suspect]
     Indication: PRODUCT USED FOR UNKNOWN INDICATION
     Dosage: 6 MG, Q3WK
     Route: 058
     Dates: start: 20130627
  2. CHEMOTHERAPEUTICS [Concomitant]
     Dosage: UNK
  3. EMEND                              /01627301/ [Concomitant]
     Dosage: UNK
  4. DEXAMETHASON                       /00016001/ [Concomitant]
     Dosage: UNK
  5. PANTOPRAZOL [Concomitant]
     Dosage: UNK
  6. METOPROLOL SUCCINATE [Concomitant]
     Dosage: UNK
  7. OXAZEPAM [Concomitant]
     Dosage: UNK
  8. METOCLOPRAMIDE [Concomitant]
     Dosage: UNK
  9. PARACETAMOL [Concomitant]
     Dosage: UNK

REACTIONS (1)
  - Pyrexia [Unknown]
